FAERS Safety Report 14556645 (Version 1)
Quarter: 2018Q1

REPORT INFORMATION
  Report Type: Spontaneous
  Country: US (occurrence: US)
  Receive Date: 20180219
  Receipt Date: 20180219
  Transmission Date: 20180509
  Serious: No
  Sender: FDA-Public Use
  Company Number: None

PATIENT
  Age: 68 Year
  Sex: Female

DRUGS (8)
  1. NORVASC [Concomitant]
     Active Substance: AMLODIPINE BESYLATE
  2. KCL [Concomitant]
     Active Substance: POTASSIUM CHLORIDE
  3. GABAPENTIN. [Concomitant]
     Active Substance: GABAPENTIN
  4. CRESTOR [Concomitant]
     Active Substance: ROSUVASTATIN CALCIUM
  5. SUTENT [Suspect]
     Active Substance: SUNITINIB MALATE
     Indication: UTERINE CANCER
     Route: 048
     Dates: start: 20151120
  6. LANTUS [Concomitant]
     Active Substance: INSULIN GLARGINE
  7. CASODEX [Concomitant]
     Active Substance: BICALUTAMIDE
  8. SYMBICORT [Concomitant]
     Active Substance: BUDESONIDE\FORMOTEROL FUMARATE DIHYDRATE

REACTIONS (2)
  - Drug dose omission [None]
  - Cyst removal [None]

NARRATIVE: CASE EVENT DATE: 20180201
